FAERS Safety Report 5213802-9 (Version None)
Quarter: 2007Q1

REPORT INFORMATION
  Report Type: 
  Country: None (occurrence: None)
  Receive Date: 20070119
  Receipt Date: 20061130
  Transmission Date: 20070707
  Serious: Yes (Other)
  Sender: FDA-Public Use
  Company Number: US-PFIZER INC-2006029566

PATIENT
  Sex: Male

DRUGS (2)
  1. BEXTRA [Suspect]
     Indication: BACK PAIN
  2. ALLEGRA-D 12 HOUR [Concomitant]

REACTIONS (2)
  - SEBORRHOEIC DERMATITIS [None]
  - STEVENS-JOHNSON SYNDROME [None]
